FAERS Safety Report 12170403 (Version 1)
Quarter: 2016Q1

REPORT INFORMATION
  Report Type: Spontaneous
  Country: US (occurrence: US)
  Receive Date: 20160311
  Receipt Date: 20160311
  Transmission Date: 20160526
  Serious: Yes (Hospitalization)
  Sender: FDA-Public Use
  Company Number: US-BEH-2016059613

PATIENT
  Sex: Female
  Weight: 92 kg

DRUGS (16)
  1. HIZENTRA [Suspect]
     Active Substance: HUMAN IMMUNOGLOBULIN G
     Indication: IMMUNODEFICIENCY COMMON VARIABLE
     Route: 058
  2. CYMBALTA [Concomitant]
     Active Substance: DULOXETINE HYDROCHLORIDE
  3. LIPITOR [Concomitant]
     Active Substance: ATORVASTATIN CALCIUM
  4. AMBIEN [Concomitant]
     Active Substance: ZOLPIDEM TARTRATE
  5. LMX [Concomitant]
     Active Substance: LIDOCAINE
  6. SEROQUEL [Concomitant]
     Active Substance: QUETIAPINE FUMARATE
  7. ALBUTEROL. [Concomitant]
     Active Substance: ALBUTEROL
  8. LYRICA [Concomitant]
     Active Substance: PREGABALIN
  9. VITAMIN D [Concomitant]
     Active Substance: CHOLECALCIFEROL
  10. NASACORT [Concomitant]
     Active Substance: TRIAMCINOLONE ACETONIDE
  11. ATIVAN [Concomitant]
     Active Substance: LORAZEPAM
  12. DIPHENHYDRAMINE. [Concomitant]
     Active Substance: DIPHENHYDRAMINE
  13. LIDOCAINE/PRILOCAINE [Concomitant]
  14. MELOXICAM. [Concomitant]
     Active Substance: MELOXICAM
  15. VITAMIN C [Concomitant]
     Active Substance: ASCORBIC ACID
  16. PRILOSEC [Concomitant]
     Active Substance: OMEPRAZOLE MAGNESIUM

REACTIONS (4)
  - Lymphadenopathy [Unknown]
  - Chest pain [Unknown]
  - Fall [Unknown]
  - Pulmonary mass [Unknown]
